FAERS Safety Report 6343195-5 (Version None)
Quarter: 2009Q3

REPORT INFORMATION
  Report Type: 
  Country: None (occurrence: None)
  Receive Date: 20090908
  Receipt Date: 20090901
  Transmission Date: 20100115
  Serious: Yes (Life-Threatening, Hospitalization, Other)
  Sender: FDA-Public Use
  Company Number: US-NOVOPROD-291183

PATIENT
  Sex: Female
  Weight: 46.259 kg

DRUGS (4)
  1. NORDITROPIN NORDIFLEX [Suspect]
     Indication: TURNER'S SYNDROME
     Dosage: 2.7 QD
     Route: 058
     Dates: start: 20070101
  2. PAXIL [Suspect]
     Indication: ANXIETY
     Dosage: UNKNOWN
  3. ZANTAC                             /00550801/ [Concomitant]
     Indication: GASTROOESOPHAGEAL REFLUX DISEASE
  4. PREMARIN [Concomitant]
     Indication: HORMONE REPLACEMENT THERAPY

REACTIONS (6)
  - AGGRESSION [None]
  - ANXIETY [None]
  - INTENTIONAL SELF-INJURY [None]
  - PANIC ATTACK [None]
  - SUICIDAL IDEATION [None]
  - SUICIDE ATTEMPT [None]
